FAERS Safety Report 6423468-8 (Version None)
Quarter: 2009Q4

REPORT INFORMATION
  Report Type: 
  Country: None (occurrence: None)
  Receive Date: 20091102
  Receipt Date: 20050429
  Transmission Date: 20100525
  Serious: No
  Sender: FDA-Public Use
  Company Number: DE-PURDUE-DEU-2005-0001309

PATIENT
  Age: 30 Year
  Sex: Female

DRUGS (6)
  1. OXYGESIC 20 MG [Suspect]
     Indication: PAIN
     Dosage: 20 MG, DAILY
     Route: 048
     Dates: start: 20041101
  2. FEMOVAN [Interacting]
     Indication: CONTRACEPTION
     Route: 048
     Dates: start: 19970101
  3. TILIDIN ^RATIOPHARM^ [Concomitant]
  4. ANTIINFLAMMATORY/ANTIRHEUMATIC PRODUCTS [Concomitant]
  5. DICLOFENAC SODIUM [Concomitant]
  6. IBUPROFEN [Concomitant]
     Dates: start: 19970101

REACTIONS (1)
  - AMENORRHOEA [None]
